FAERS Safety Report 4560703-5 (Version None)
Quarter: 2005Q1

REPORT INFORMATION
  Report Type: 
  Country: None (occurrence: None)
  Receive Date: 20050126
  Receipt Date: 20050114
  Transmission Date: 20050727
  Serious: Yes (Other)
  Sender: FDA-Public Use
  Company Number: US-JNJFOC-20050104232

PATIENT
  Sex: Female
  Weight: 79.83 kg

DRUGS (4)
  1. REMICADE [Suspect]
     Indication: CROHN'S DISEASE
     Dosage: FROM 2 YEARS AGO(2003) THROUGH 2 MONTHS AGO(FROM DATE OF REPORT)
     Route: 042
  2. STEROIDS [Concomitant]
  3. PENTASA [Concomitant]
  4. VASOTEC [Concomitant]

REACTIONS (2)
  - ARTHRALGIA [None]
  - LUPUS-LIKE SYNDROME [None]
